FAERS Safety Report 19609484 (Version 1)
Quarter: 2021Q3

REPORT INFORMATION
  Report Type: Spontaneous
  Country: US (occurrence: US)
  Receive Date: 20210722
  Receipt Date: 20210722
  Transmission Date: 20211014
  Serious: Yes (Other)
  Sender: FDA-Public Use
  Company Number: None

PATIENT
  Age: 22 Year
  Sex: Female

DRUGS (1)
  1. AFINITOR [Suspect]
     Active Substance: EVEROLIMUS
     Route: 048
     Dates: start: 202106

REACTIONS (5)
  - Dyspnoea [None]
  - Mucosal inflammation [None]
  - Palmar-plantar erythrodysaesthesia syndrome [None]
  - Flushing [None]
  - Nasal inflammation [None]

NARRATIVE: CASE EVENT DATE: 20210701
